FAERS Safety Report 18100308 (Version 4)
Quarter: 2021Q1

REPORT INFORMATION
  Report Type: Report from Study
  Country: DE (occurrence: DE)
  Receive Date: 20200731
  Receipt Date: 20210121
  Transmission Date: 20210419
  Serious: Yes (Hospitalization, Other)
  Sender: FDA-Public Use
  Company Number: DE-INCYTE CORPORATION-2018IN005999

PATIENT

DRUGS (23)
  1. LIDOCAINE. [Concomitant]
     Active Substance: LIDOCAINE
     Indication: PAIN
     Dosage: 700 MG (BY NIGHT)
     Route: 062
     Dates: start: 2018, end: 201812
  2. NOVAMINSULFON [Concomitant]
     Active Substance: METAMIZOLE
     Dosage: 80 DRP, QD
     Route: 065
     Dates: start: 20200131, end: 202006
  3. TARGIN [Concomitant]
     Active Substance: NALOXONE HYDROCHLORIDE\OXYCODONE HYDROCHLORIDE
     Indication: PAIN
     Dosage: 1 DF, BID (5/2.5 MG, (1?0?1))
     Route: 048
     Dates: start: 20200528, end: 20200618
  4. CERTOPARIN SODIUM [Concomitant]
     Active Substance: CERTOPARIN SODIUM
     Indication: THROMBOSIS PROPHYLAXIS
     Dosage: 8000 IU, QD (1?0?0)
     Route: 058
     Dates: start: 20181217, end: 20181217
  5. CLOBETASOL [Concomitant]
     Active Substance: CLOBETASOL
     Indication: LICHEN SCLEROSUS
     Dosage: 0.44 MG, BID (1?0?1)
     Route: 065
     Dates: end: 20200709
  6. PENICILLIN [PENICILLIN NOS] [Concomitant]
     Active Substance: PENICILLIN
     Indication: ERYSIPELAS
     Dosage: UNK (RENAL INSUFFICIENCY)
     Route: 042
     Dates: start: 20181206, end: 20181213
  7. AMOXICILLIN TRIHYDRATE [Concomitant]
     Active Substance: AMOXICILLIN
     Indication: ERYSIPELAS
     Dosage: UNK (RENAL INSUFFICIENCY)
     Route: 048
     Dates: start: 20181203, end: 20181206
  8. NOVAMINSULFON [Concomitant]
     Active Substance: METAMIZOLE
     Indication: PAIN
     Dosage: 40 DRP, PRN
     Route: 048
     Dates: start: 20190823, end: 202001
  9. NADIXA [Concomitant]
     Indication: RASH
     Dosage: 2 G, PRN
     Route: 061
     Dates: start: 20191114, end: 202002
  10. LYRICA [Concomitant]
     Active Substance: PREGABALIN
     Indication: PARAESTHESIA
     Dosage: 75 MG, QHS
     Route: 048
     Dates: start: 20180605, end: 20180703
  11. ASPIRIN. [Concomitant]
     Active Substance: ASPIRIN
     Indication: POLYCYTHAEMIA VERA
     Dosage: 100 MG, QOD (1?0?0)
     Route: 058
     Dates: start: 20180508
  12. ORTOTON [METHOCARBAMOL] [Concomitant]
     Active Substance: METHOCARBAMOL
     Indication: PAIN
     Dosage: 2 DF, QD (750 MG  0?0?0?2)
     Route: 048
     Dates: start: 20200131, end: 202006
  13. JAKAVI [Suspect]
     Active Substance: RUXOLITINIB
     Dosage: 10 MG, BID
     Route: 048
     Dates: start: 20180327
  14. JAKAVI [Suspect]
     Active Substance: RUXOLITINIB
     Dosage: 20 MG, BID
     Route: 048
     Dates: start: 20180807
  15. OMEPRAZOLE. [Concomitant]
     Active Substance: OMEPRAZOLE
     Indication: GASTROOESOPHAGEAL REFLUX DISEASE
     Dosage: 40 MG, QD (0?0?1)
     Route: 048
  16. DICLOFENAC [Concomitant]
     Active Substance: DICLOFENAC
     Indication: OSTEOARTHRITIS
     Dosage: UNK
     Route: 062
     Dates: start: 20190823, end: 20200709
  17. JAKAVI [Suspect]
     Active Substance: RUXOLITINIB
     Dosage: 10 MG, BID
     Route: 048
     Dates: start: 20190312
  18. TRAMABIAN [Concomitant]
     Indication: PAIN
     Dosage: 75/650 , BID (1?0?1)
     Route: 048
     Dates: start: 20191114, end: 202006
  19. JAKAVI [Suspect]
     Active Substance: RUXOLITINIB
     Dosage: 5 MG, BID
     Route: 048
     Dates: start: 20180704, end: 20190311
  20. GABAPENTIN. [Concomitant]
     Active Substance: GABAPENTIN
     Indication: POLYNEUROPATHY
     Dosage: 100 MG, BID (1?0?1)
     Route: 048
     Dates: start: 20200709
  21. DEKRISTOL [Concomitant]
     Active Substance: CHOLECALCIFEROL
     Indication: PROPHYLAXIS
     Dosage: 20.000 IU, QMO
     Route: 048
  22. JAKAVI [Suspect]
     Active Substance: RUXOLITINIB
     Indication: POLYCYTHAEMIA VERA
     Dosage: 10 MG, BID
     Route: 048
     Dates: start: 20170925, end: 20180214
  23. JAKAVI [Suspect]
     Active Substance: RUXOLITINIB
     Dosage: 15 MG, BID
     Route: 048
     Dates: start: 20180215, end: 20180806

REACTIONS (20)
  - Dyspnoea [Not Recovered/Not Resolved]
  - Osteoarthritis [Not Recovered/Not Resolved]
  - Oedema peripheral [Not Recovered/Not Resolved]
  - Restlessness [Not Recovered/Not Resolved]
  - Blood pressure increased [Recovered/Resolved]
  - Sensation of foreign body [Not Recovered/Not Resolved]
  - Spinal stenosis [Not Recovered/Not Resolved]
  - Chillblains [Not Recovered/Not Resolved]
  - Dry mouth [Not Recovered/Not Resolved]
  - Drug intolerance [Not Recovered/Not Resolved]
  - Rash [Not Recovered/Not Resolved]
  - Urinary tract infection [Recovered/Resolved]
  - Hyperthyroidism [Not Recovered/Not Resolved]
  - Anaemia [Not Recovered/Not Resolved]
  - Hypertension [Not Recovered/Not Resolved]
  - Psychotic disorder [Unknown]
  - Intervertebral disc protrusion [Not Recovered/Not Resolved]
  - Spinal osteoarthritis [Not Recovered/Not Resolved]
  - Vision blurred [Not Recovered/Not Resolved]
  - Muscle spasms [Not Recovered/Not Resolved]

NARRATIVE: CASE EVENT DATE: 20180605
